FAERS Safety Report 6969181-X (Version None)
Quarter: 2010Q3

REPORT INFORMATION
  Report Type: 
  Country: None (occurrence: None)
  Receive Date: 20100907
  Receipt Date: 20100830
  Transmission Date: 20110219
  Serious: Yes (Hospitalization)
  Sender: FDA-Public Use
  Company Number: PHHY2010US58110

PATIENT
  Sex: Female

DRUGS (2)
  1. FORADIL [Suspect]
     Indication: CHRONIC OBSTRUCTIVE PULMONARY DISEASE
     Dosage: IN THE MORNING AND EVENING
     Dates: end: 20100828
  2. SPIRIVA [Concomitant]
     Dosage: IN THE MORNING

REACTIONS (5)
  - ACCIDENT [None]
  - EXPIRED DRUG ADMINISTERED [None]
  - NASAL DISCOMFORT [None]
  - THROAT IRRITATION [None]
  - TREATMENT NONCOMPLIANCE [None]
